FAERS Safety Report 17724360 (Version 4)
Quarter: 2020Q3

REPORT INFORMATION
  Report Type: Spontaneous
  Country: US (occurrence: US)
  Receive Date: 20200429
  Receipt Date: 20200716
  Transmission Date: 20201102
  Serious: Yes (Other)
  Sender: FDA-Public Use
  Company Number: US-PFIZER INC-2020170384

PATIENT
  Age: 59 Year
  Sex: Female
  Weight: 79.38 kg

DRUGS (4)
  1. ARTHROTEC [Suspect]
     Active Substance: DICLOFENAC SODIUM\MISOPROSTOL
     Indication: KNEE OPERATION
  2. ARTHROTEC [Suspect]
     Active Substance: DICLOFENAC SODIUM\MISOPROSTOL
     Indication: SHOULDER OPERATION
  3. PREMARIN [Suspect]
     Active Substance: ESTROGENS, CONJUGATED
     Indication: HYSTERECTOMY
     Dosage: UNK, 1X/DAY (625 ONCE A DAY MOUTH)
     Route: 048
  4. ARTHROTEC [Suspect]
     Active Substance: DICLOFENAC SODIUM\MISOPROSTOL
     Indication: SPINAL OPERATION
     Dosage: UNK, 2X/DAY (75 TWICE A DAY BY MOUTH)
     Route: 048
     Dates: start: 1991

REACTIONS (2)
  - Drug dependence [Unknown]
  - Feeling of despair [Unknown]
